FAERS Safety Report 9074807 (Version 1)
Quarter: 2013Q1

REPORT INFORMATION
  Report Type: Spontaneous
  Country: US (occurrence: US)
  Receive Date: 20130129
  Receipt Date: 20130129
  Transmission Date: 20140127
  Serious: No
  Sender: FDA-Public Use
  Company Number: US-ABBOTT-12P-163-0967225-00

PATIENT
  Sex: Male
  Weight: 86.2 kg

DRUGS (2)
  1. LUPRON [Suspect]
     Indication: PROSTATE CANCER
     Route: 030
  2. TRELSTAR [Suspect]
     Indication: PROSTATE CANCER
     Route: 050
     Dates: start: 201204

REACTIONS (3)
  - Prostatic specific antigen increased [Not Recovered/Not Resolved]
  - Musculoskeletal stiffness [Not Recovered/Not Resolved]
  - Myalgia [Not Recovered/Not Resolved]
